FAERS Safety Report 5272499-2 (Version None)
Quarter: 2007Q1

REPORT INFORMATION
  Report Type: 
  Country: None (occurrence: None)
  Receive Date: 20070322
  Receipt Date: 20060426
  Transmission Date: 20070707
  Serious: Yes (Other)
  Sender: FDA-Public Use
  Company Number: US-BRISTOL-MYERS SQUIBB COMPANY-13359377

PATIENT
  Sex: Female

DRUGS (3)
  1. REYATAZ [Suspect]
  2. KENALOG [Suspect]
  3. RITONAVIR [Concomitant]

REACTIONS (1)
  - CUSHING'S SYNDROME [None]
